FAERS Safety Report 7981920-8 (Version None)
Quarter: 2011Q4

REPORT INFORMATION
  Report Type: 
  Country: None (occurrence: None)
  Receive Date: 20111213
  Receipt Date: 20111129
  Transmission Date: 20120403
  Serious: Yes (Other)
  Sender: FDA-Public Use
  Company Number: 2011AP002891

PATIENT
  Age: 56 Year
  Sex: Male

DRUGS (10)
  1. ARIPIPRAZOLE [Concomitant]
  2. CLOZAPINE [Suspect]
     Indication: PSYCHOTIC DISORDER
     Dosage: 550 MG;QD ; 200 MG;QD ; 150 MG;QD ; 125 MG;QD ; 100 MG;QD
  3. OXCARBAZEPINE [Concomitant]
  4. QUETIAPINE [Concomitant]
  5. CARBAMAZEPINE [Concomitant]
  6. LITHIUM CARBONATE [Suspect]
     Indication: SCHIZOPHRENIA, PARANOID TYPE
  7. VALPROIC ACID [Suspect]
     Indication: PRODUCT USED FOR UNKNOWN INDICATION
  8. HALOPERIDOL [Suspect]
     Indication: SCHIZOPHRENIA, PARANOID TYPE
     Dosage: 10 MG;BID
  9. ZIPRASIDONE HYDROCHLORIDE [Concomitant]
  10. RISPERDAL [Concomitant]

REACTIONS (7)
  - SEBORRHOEIC DERMATITIS [None]
  - HOMICIDAL IDEATION [None]
  - ELECTROCARDIOGRAM T WAVE ABNORMAL [None]
  - THROMBOCYTOPENIA [None]
  - ELECTROCARDIOGRAM QT PROLONGED [None]
  - PSYCHOTIC DISORDER [None]
  - SUICIDAL IDEATION [None]
